FAERS Safety Report 4847914-6 (Version None)
Quarter: 2005Q4

REPORT INFORMATION
  Report Type: 
  Country: None (occurrence: None)
  Receive Date: 20051206
  Receipt Date: 20051206
  Transmission Date: 20060501
  Serious: Yes (Other)
  Sender: FDA-Public Use
  Company Number: None

PATIENT

DRUGS (5)
  1. CLONAZEPAM [Suspect]
     Indication: CONVULSION
     Dosage: RANGE - 1 HS TO 1 TID
  2. CLONAZEPAM [Suspect]
     Indication: SLEEP DISORDER
     Dosage: RANGE - 1 HS TO 1 TID
  3. CLONAZEPAM [Suspect]
     Indication: ANXIETY
     Dosage: RANGE - 1-2 HS TO 1 QID
  4. CLONAZEPAM [Suspect]
     Indication: PANIC ATTACK
     Dosage: RANGE - 1-2 HS TO 1 QID
  5. CLONAZEPAM [Suspect]
     Indication: RESTLESS LEGS SYNDROME
     Dosage: RANGE - 1-2 HS TO 1 QID

REACTIONS (2)
  - DRUG INEFFECTIVE [None]
  - PHARMACEUTICAL PRODUCT COMPLAINT [None]
